FAERS Safety Report 5051156-1 (Version None)
Quarter: 2006Q3

REPORT INFORMATION
  Report Type: 
  Country: None (occurrence: None)
  Receive Date: 20060714
  Receipt Date: 20060703
  Transmission Date: 20061208
  Serious: Yes (Other)
  Sender: FDA-Public Use
  Company Number: JP-NOVOPROD-254709

PATIENT
  Age: 65 Year
  Sex: Male

DRUGS (6)
  1. AMARYL [Concomitant]
     Indication: DIABETES MELLITUS
     Route: 048
     Dates: start: 20030101
  2. BASEN [Concomitant]
     Indication: DIABETES MELLITUS
     Dosage: UNK, UNK
     Route: 048
     Dates: start: 20030101
  3. NOVORAPID 30 MIX CHU FLEXPEN [Suspect]
     Indication: DIABETES MELLITUS
     Dosage: 28 IU, UNK
     Route: 058
     Dates: start: 20050401, end: 20060522
  4. NOVORAPID CHU FLEXPEN [Suspect]
     Indication: DIABETES MELLITUS
     Dosage: 20 IU, UNK
     Route: 058
     Dates: start: 20060523, end: 20060603
  5. NOVOLIN N [Suspect]
     Indication: DIABETES MELLITUS
     Dosage: 6 IU, UNK
     Route: 058
     Dates: start: 20060523, end: 20060603
  6. HUMALOG                            /00030501/ [Concomitant]
     Indication: DIABETES MELLITUS
     Route: 058
     Dates: start: 20060604, end: 20060601

REACTIONS (1)
  - ENDOCRINE TEST ABNORMAL [None]
